FAERS Safety Report 4673025-9 (Version None)
Quarter: 2005Q2

REPORT INFORMATION
  Report Type: 
  Country: None (occurrence: None)
  Receive Date: 20050524
  Receipt Date: 20050509
  Transmission Date: 20051028
  Serious: Yes (Hospitalization, Other)
  Sender: FDA-Public Use
  Company Number: 2005054889

PATIENT
  Age: 60 Year
  Sex: Male
  Weight: 65 kg

DRUGS (4)
  1. HALCION [Suspect]
     Indication: INSOMNIA
     Dosage: 0.25 MG (0.25 MG, 1 IN 1 D), ORAL
     Route: 048
     Dates: start: 20010824
  2. TAGAMET [Suspect]
     Indication: RECTAL CANCER
     Dosage: 800 MG (400 MG, 2 IN 1 D), ORAL
     Route: 048
     Dates: start: 20010824
  3. PAXIL [Suspect]
     Indication: ANXIETY
     Dosage: 10 MG (10 MG, 1 IN 1 D), ORAL
     Route: 048
     Dates: start: 20020212, end: 20050214
  4. DEPAS (ETIZOLAM) [Suspect]
     Indication: ANXIETY DISORDER
     Dosage: 3 MG (1 MG, 3 IN 1 D), ORAL
     Route: 048
     Dates: end: 20050212

REACTIONS (19)
  - APHASIA [None]
  - BLOOD BILIRUBIN INCREASED [None]
  - BLOOD CREATINE PHOSPHOKINASE INCREASED [None]
  - BLOOD LACTATE DEHYDROGENASE INCREASED [None]
  - BLOOD UREA INCREASED [None]
  - CHILLS [None]
  - DECREASED APPETITE [None]
  - DRUG EFFECT INCREASED [None]
  - DRUG INTERACTION [None]
  - FEELING ABNORMAL [None]
  - HEADACHE [None]
  - HYPERHIDROSIS [None]
  - HYPERVENTILATION [None]
  - HYPOAESTHESIA [None]
  - IMPAIRED DRIVING ABILITY [None]
  - MALAISE [None]
  - MYOGLOBIN URINE PRESENT [None]
  - NEUROLEPTIC MALIGNANT SYNDROME [None]
  - WHITE BLOOD CELL COUNT INCREASED [None]
